FAERS Safety Report 8837855 (Version 1)
Quarter: 2012Q4

REPORT INFORMATION
  Report Type: 
  Country: US (occurrence: US)
  Receive Date: 20121012
  Receipt Date: 20121012
  Transmission Date: 20130627
  Serious: Yes (Death, Other)
  Sender: FDA-Public Use
  Company Number: US-ROCHE-1123287

PATIENT
  Sex: Female

DRUGS (5)
  1. AVASTIN [Suspect]
     Indication: BREAST CANCER FEMALE
     Route: 065
  2. AVASTIN [Suspect]
     Indication: METASTASES TO LIVER
  3. NAVELBINE [Concomitant]
  4. ABRAXANE [Concomitant]
  5. VELBAN [Concomitant]
     Route: 065
     Dates: start: 200605

REACTIONS (2)
  - Death [Fatal]
  - Pancytopenia [Unknown]
